FAERS Safety Report 16864493 (Version 4)
Quarter: 2019Q4

REPORT INFORMATION
  Report Type: Report from Study
  Country: US (occurrence: US)
  Receive Date: 20190928
  Receipt Date: 20191206
  Transmission Date: 20200122
  Serious: Yes (Other)
  Sender: FDA-Public Use
  Company Number: PHEH2019US039842

PATIENT
  Age: 55 Year
  Sex: Female

DRUGS (4)
  1. MAYZENT [Suspect]
     Active Substance: SIPONIMOD
     Indication: MULTIPLE SCLEROSIS
     Dosage: 2 MG, QID
     Route: 048
     Dates: start: 20190701
  2. MAYZENT [Suspect]
     Active Substance: SIPONIMOD
     Dosage: 4 DF (0.25 MG), QD
     Route: 048
  3. MAYZENT [Suspect]
     Active Substance: SIPONIMOD
     Dosage: 1 MG, QD
     Route: 048
     Dates: start: 20190722
  4. MAYZENT [Suspect]
     Active Substance: SIPONIMOD
     Dosage: 1 MG, BID
     Route: 048
     Dates: start: 20190722

REACTIONS (10)
  - Precancerous lesion [Unknown]
  - Overdose [Not Recovered/Not Resolved]
  - Skin lesion [Unknown]
  - White blood cell count decreased [Unknown]
  - Skin discolouration [Unknown]
  - Confusional state [Unknown]
  - Blood pressure increased [Unknown]
  - Impaired healing [Unknown]
  - Incorrect dose administered [Not Recovered/Not Resolved]
  - Nasopharyngitis [Unknown]

NARRATIVE: CASE EVENT DATE: 20190701
